FAERS Safety Report 7342116-6 (Version None)
Quarter: 2011Q1

REPORT INFORMATION
  Report Type: 
  Country: None (occurrence: None)
  Receive Date: 20110309
  Receipt Date: 20110304
  Transmission Date: 20110831
  Serious: Yes (Other)
  Sender: FDA-Public Use
  Company Number: US-GENENTECH-314758

PATIENT

DRUGS (1)
  1. ACTIVASE [Suspect]
     Indication: CEREBRAL ARTERY OCCLUSION
     Dosage: UNK
     Dates: start: 20110303

REACTIONS (1)
  - CEREBRAL ARTERY EMBOLISM [None]
